FAERS Safety Report 4537833-7 (Version None)
Quarter: 2004Q4

REPORT INFORMATION
  Report Type: 
  Country: None (occurrence: None)
  Receive Date: 20041224
  Receipt Date: 20030605
  Transmission Date: 20050328
  Serious: Yes (Hospitalization, Other)
  Sender: FDA-Public Use
  Company Number: US-MERCK-0306USA00721

PATIENT
  Age: 35 Year
  Sex: Female
  Weight: 75 kg

DRUGS (5)
  1. VIOXX [Suspect]
     Route: 048
     Dates: start: 20010101, end: 20010604
  2. REMERON [Concomitant]
     Route: 065
  3. ELAVIL [Concomitant]
     Route: 065
  4. VICODIN [Concomitant]
     Route: 065
  5. SOMA [Concomitant]
     Route: 065

REACTIONS (21)
  - ADVERSE EVENT [None]
  - AFFECTIVE DISORDER [None]
  - AGGRESSION [None]
  - ANGINA PECTORIS [None]
  - ANXIETY [None]
  - BIPOLAR DISORDER [None]
  - BLOOD PRESSURE INCREASED [None]
  - BRONCHITIS [None]
  - CONVULSION [None]
  - DELUSION [None]
  - DELUSIONAL DISORDER, PERSECUTORY TYPE [None]
  - DEPRESSION [None]
  - FLUID RETENTION [None]
  - HYPERTENSION [None]
  - INTERVERTEBRAL DISC PROTRUSION [None]
  - OSTEOARTHRITIS [None]
  - PAIN [None]
  - ROAD TRAFFIC ACCIDENT [None]
  - SCIATICA [None]
  - SPONDYLOSIS [None]
  - STRESS SYMPTOMS [None]
